FAERS Safety Report 13563028 (Version 1)
Quarter: 2017Q2

REPORT INFORMATION
  Report Type: Spontaneous
  Country: US (occurrence: US)
  Receive Date: 20170518
  Receipt Date: 20170518
  Transmission Date: 20170830
  Serious: No
  Sender: FDA-Public Use
  Company Number: None

PATIENT
  Age: 36 Year
  Sex: Female
  Weight: 76.66 kg

DRUGS (1)
  1. BUPRENORPHINE HCI/ NALOXONE, 8-2 MG [Suspect]
     Active Substance: BUPRENORPHINE HYDROCHLORIDE\NALOXONE
     Indication: DRUG USE DISORDER

REACTIONS (1)
  - Headache [None]

NARRATIVE: CASE EVENT DATE: 20160115
